FAERS Safety Report 7064570-X (Version None)
Quarter: 2010Q4

REPORT INFORMATION
  Report Type: 
  Country: None (occurrence: None)
  Receive Date: 20101027
  Receipt Date: 20101027
  Transmission Date: 20110411
  Serious: Yes (Hospitalization)
  Sender: FDA-Public Use
  Company Number: PHHO2000DE08462

PATIENT
  Sex: Female
  Weight: 68 kg

DRUGS (1)
  1. CERTICAN [Suspect]
     Indication: RENAL TRANSPLANT
     Dosage: 3MG
     Route: 048
     Dates: start: 19981022

REACTIONS (2)
  - PNEUMONIA [None]
  - PYREXIA [None]
